FAERS Safety Report 25357003 (Version 1)
Quarter: 2025Q2

REPORT INFORMATION
  Report Type: Spontaneous
  Country: US (occurrence: US)
  Receive Date: 20250526
  Receipt Date: 20250526
  Transmission Date: 20250717
  Serious: No
  Sender: VANDA PHARMACEUTICALS
  Company Number: US-VANDA PHARMACEUTICALS, INC-2024ILOUS001981

PATIENT
  Age: 72 Year
  Sex: Female

DRUGS (3)
  1. FANAPT [Suspect]
     Active Substance: ILOPERIDONE
     Indication: Major depression
     Dosage: 4 MILLIGRAM, QHS (8 MG TABLET, SPLITS IN HALF AND TAKES 4 MG QHS)
     Dates: start: 202407
  2. FANAPT [Suspect]
     Active Substance: ILOPERIDONE
     Indication: Post-traumatic stress disorder
  3. PAXIL [Concomitant]
     Active Substance: PAROXETINE HYDROCHLORIDE
     Indication: Product used for unknown indication
     Dates: end: 20241022

REACTIONS (4)
  - Fall [Unknown]
  - Orthostatic hypotension [Unknown]
  - Off label use [Unknown]
  - Incorrect dose administered [Unknown]

NARRATIVE: CASE EVENT DATE: 20240701
